FAERS Safety Report 20586014 (Version 1)
Quarter: 2022Q1

REPORT INFORMATION
  Report Type: Other
  Country: US (occurrence: None)
  Receive Date: 20220313
  Receipt Date: 20220313
  Transmission Date: 20220423
  Serious: Yes (Other)
  Sender: FDA-Public Use
  Company Number: US-ROCHE-3040567

PATIENT
  Age: 52 Year
  Sex: Female
  Weight: 59.928 kg

DRUGS (16)
  1. OCREVUS [Suspect]
     Active Substance: OCRELIZUMAB
     Indication: Relapsing-remitting multiple sclerosis
     Dosage: (PRESCRIBED AS 600 MG IV EVERY 6 MONTHS)
     Route: 042
     Dates: start: 201907
  2. DIAZEPAM [Suspect]
     Active Substance: DIAZEPAM
     Indication: Product used for unknown indication
     Dosage: PILL;
     Route: 048
  3. ROPINIROLE [Concomitant]
     Active Substance: ROPINIROLE
  4. TRAZODONE [Concomitant]
     Active Substance: TRAZODONE HYDROCHLORIDE
  5. MELOXICAM [Concomitant]
     Active Substance: MELOXICAM
  6. BACLOFEN [Concomitant]
     Active Substance: BACLOFEN
  7. OXYBUTYNIN [Concomitant]
     Active Substance: OXYBUTYNIN
  8. METHOCARBAMOL [Concomitant]
     Active Substance: METHOCARBAMOL
  9. CARBAMAZEPINE [Concomitant]
     Active Substance: CARBAMAZEPINE
  10. OMEPRAZOLE [Concomitant]
     Active Substance: OMEPRAZOLE
  11. PANTOPRAZOLE [Concomitant]
     Active Substance: PANTOPRAZOLE
  12. FLUOXETINE [Concomitant]
     Active Substance: FLUOXETINE HYDROCHLORIDE
  13. FLUCONAZOLE [Concomitant]
     Active Substance: FLUCONAZOLE
  14. TEMAZEPAM [Concomitant]
     Active Substance: TEMAZEPAM
  15. TOBRAMYCIN [Concomitant]
     Active Substance: TOBRAMYCIN
  16. BENADRYL [Concomitant]
     Active Substance: DIPHENHYDRAMINE HYDROCHLORIDE

REACTIONS (11)
  - Multiple sclerosis relapse [Not Recovered/Not Resolved]
  - Erythema [Not Recovered/Not Resolved]
  - Road traffic accident [Unknown]
  - Contusion [Recovered/Resolved]
  - Pain [Recovered/Resolved]
  - Hypoaesthesia [Not Recovered/Not Resolved]
  - Paraesthesia [Not Recovered/Not Resolved]
  - Burning sensation [Not Recovered/Not Resolved]
  - Conjunctivitis [Not Recovered/Not Resolved]
  - COVID-19 [Unknown]
  - Memory impairment [Unknown]

NARRATIVE: CASE EVENT DATE: 20210301
